FAERS Safety Report 14661293 (Version 1)
Quarter: 2018Q1

REPORT INFORMATION
  Report Type: Report from Study
  Country: JP (occurrence: JP)
  Receive Date: 20180320
  Receipt Date: 20180320
  Transmission Date: 20180509
  Serious: Yes (Other)
  Sender: FDA-Public Use
  Company Number: JP-MYLANLABS-2018M1017559

PATIENT

DRUGS (3)
  1. BEVACIZUMAB. [Suspect]
     Active Substance: BEVACIZUMAB
     Indication: COLORECTAL CANCER METASTATIC
     Dosage: XELIRI PLUS BEVACIZUMAB REGIMEN; 10 MG/KG DAY-1 EVERY 2 WEEKS
     Route: 065
  2. IRINOTECAN [Suspect]
     Active Substance: IRINOTECAN
     Indication: COLORECTAL CANCER METASTATIC
     Dosage: XELIRI PLUS BEVACIZUMAB REGIMEN; 150MG/M2 ON DAY 1 EVERY 2 WEEKS
     Route: 042
  3. CAPECITABINE. [Suspect]
     Active Substance: CAPECITABINE
     Indication: COLORECTAL CANCER METASTATIC
     Dosage: XELIRI PLUS BEVACIZUMAB REGIMEN; 1,000 MG/M2 TWICE DAILY FROM THE EVENING OF DAY 1 TO THE MORNING...
     Route: 065

REACTIONS (1)
  - Interstitial lung disease [Recovering/Resolving]
